FAERS Safety Report 24294178 (Version 1)
Quarter: 2024Q3

REPORT INFORMATION
  Report Type: Spontaneous
  Country: US (occurrence: US)
  Receive Date: 20240906
  Receipt Date: 20240906
  Transmission Date: 20241017
  Serious: No
  Sender: PFIZER
  Company Number: US-PFIZER INC-202400250273

PATIENT
  Age: 74 Year
  Sex: Male
  Weight: 100.52 kg

DRUGS (1)
  1. NURTEC ODT [Suspect]
     Active Substance: RIMEGEPANT SULFATE
     Indication: Migraine
     Dosage: 75 MG, IT MELTS ONE UNDER HIS TONGUE EVERY OTHER DAY
     Route: 060
     Dates: start: 202408

REACTIONS (2)
  - Gastrointestinal disorder [Unknown]
  - Cough [Unknown]
